FAERS Safety Report 7389556-7 (Version None)
Quarter: 2011Q2

REPORT INFORMATION
  Report Type: 
  Country: None (occurrence: None)
  Receive Date: 20110401
  Receipt Date: 20110321
  Transmission Date: 20111010
  Serious: Yes (Hospitalization)
  Sender: FDA-Public Use
  Company Number: PHHY2011US23071

PATIENT
  Sex: Female

DRUGS (9)
  1. OXYCODONE [Concomitant]
  2. CORTICOSTEROIDS [Concomitant]
  3. EXJADE [Suspect]
     Dosage: 1250 MG DAILY
     Route: 048
  4. ACETAMINOPHEN [Concomitant]
     Dosage: UNK
     Route: 048
  5. ZOLPIDEM [Concomitant]
     Dosage: 10 MG, QD
     Route: 048
  6. GABAPENTIN [Concomitant]
     Dosage: 600 MG, TID
     Route: 048
  7. ACETAMINOPHEN [Concomitant]
  8. BENADRYL [Concomitant]
  9. FOLIC ACID [Concomitant]
     Dosage: 01 MG, QD
     Route: 048

REACTIONS (6)
  - SICKLE CELL ANAEMIA WITH CRISIS [None]
  - DIZZINESS [None]
  - DYSPNOEA [None]
  - HAEMOCHROMATOSIS [None]
  - PAIN [None]
  - HAEMOGLOBIN DECREASED [None]
